FAERS Safety Report 10018108 (Version 2)
Quarter: 2014Q1

REPORT INFORMATION
  Report Type: Spontaneous
  Country: US (occurrence: US)
  Receive Date: 20140318
  Receipt Date: 20140318
  Transmission Date: 20141002
  Serious: No
  Sender: FDA-Public Use
  Company Number: US-BRISTOL-MYERS SQUIBB COMPANY-18971986

PATIENT
  Age: 84 Year
  Sex: Female

DRUGS (1)
  1. ERBITUX [Suspect]
     Indication: SQUAMOUS CELL CARCINOMA OF HEAD AND NECK
     Dosage: 21MAY12,28MAY13,03JUN13,10JUN13
     Route: 042
     Dates: start: 20130513, end: 2013

REACTIONS (3)
  - Speech disorder [Unknown]
  - Oral pain [Unknown]
  - Dysphagia [Unknown]
